FAERS Safety Report 20529369 (Version 1)
Quarter: 2022Q1

REPORT INFORMATION
  Report Type: Spontaneous
  Country: US (occurrence: US)
  Receive Date: 20220228
  Receipt Date: 20220228
  Transmission Date: 20220423
  Serious: Yes (Other)
  Sender: FDA-Public Use
  Company Number: US-BEH-2022142591

PATIENT
  Sex: Female

DRUGS (1)
  1. HIZENTRA [Suspect]
     Active Substance: HUMAN IMMUNOGLOBULIN G
     Indication: Illness
     Dosage: 10 GRAM, QW
     Route: 058
     Dates: start: 20201014

REACTIONS (3)
  - Hysterectomy [Unknown]
  - No adverse event [Unknown]
  - Product dose omission issue [Unknown]
